FAERS Safety Report 7983447-6 (Version None)
Quarter: 2011Q4

REPORT INFORMATION
  Report Type: 
  Country: None (occurrence: None)
  Receive Date: 20111215
  Receipt Date: 20110825
  Transmission Date: 20120403
  Serious: No
  Sender: FDA-Public Use
  Company Number: US-BAYER-2011-082752

PATIENT
  Sex: Female

DRUGS (1)
  1. FINACEA [Suspect]
     Route: 061

REACTIONS (2)
  - PARAESTHESIA [None]
  - PRURITUS [None]
